FAERS Safety Report 13115789 (Version 1)
Quarter: 2017Q1

REPORT INFORMATION
  Report Type: Spontaneous
  Country: US (occurrence: US)
  Receive Date: 20170115
  Receipt Date: 20170115
  Transmission Date: 20170428
  Serious: Yes (Death)
  Sender: FDA-Public Use
  Company Number: US-ALVOGEN-2017-ALVOGEN-090933

PATIENT
  Age: 53 Year
  Sex: Female

DRUGS (6)
  1. ACETAMINOPHEN W/OXYCODONE [Suspect]
     Active Substance: ACETAMINOPHEN\OXYCODONE HYDROCHLORIDE
     Indication: SUICIDE ATTEMPT
     Route: 048
  2. OXYCODONE [Suspect]
     Active Substance: OXYCODONE
     Indication: SUICIDE ATTEMPT
     Route: 048
  3. PROMETHAZINE [Suspect]
     Active Substance: PROMETHAZINE\PROMETHAZINE HYDROCHLORIDE
     Indication: SUICIDE ATTEMPT
     Route: 048
  4. TRAMADOL. [Suspect]
     Active Substance: TRAMADOL
     Indication: SUICIDE ATTEMPT
     Route: 048
  5. LEVOTHYROXINE. [Suspect]
     Active Substance: LEVOTHYROXINE
     Indication: SUICIDE ATTEMPT
     Route: 048
  6. ZOLPIDEM [Suspect]
     Active Substance: ZOLPIDEM\ZOLPIDEM TARTRATE
     Indication: SUICIDE ATTEMPT
     Route: 048

REACTIONS (1)
  - Completed suicide [Fatal]
